FAERS Safety Report 6861006-6 (Version None)
Quarter: 2010Q3

REPORT INFORMATION
  Report Type: 
  Country: None (occurrence: None)
  Receive Date: 20100720
  Receipt Date: 20100713
  Transmission Date: 20110219
  Serious: Yes (Other)
  Sender: FDA-Public Use
  Company Number: GB-JNJFOC-20100701213

PATIENT
  Age: 52 Year
  Sex: Female
  Weight: 53.95 kg

DRUGS (10)
  1. ACETAMINOPHEN AND CODEINE PHOSPHATE [Suspect]
     Indication: PRODUCT USED FOR UNKNOWN INDICATION
     Route: 065
  2. CLINDAMYCIN [Interacting]
     Indication: POSTOPERATIVE CARE
     Route: 042
  3. ORAMORPH SR [Interacting]
     Indication: PAIN
     Route: 048
  4. BISOPROLOL [Concomitant]
     Route: 065
  5. CHLORPHENAMINE [Concomitant]
     Route: 065
  6. CITALOPRAM HYDROBROMIDE [Concomitant]
     Route: 065
  7. DICLOFENAC [Concomitant]
     Route: 065
  8. FERROUS FUMARATE [Concomitant]
     Route: 065
  9. SENNA [Concomitant]
     Route: 065
  10. SIMVASTATIN [Concomitant]
     Route: 065

REACTIONS (3)
  - BLISTER [None]
  - DRUG INTERACTION [None]
  - STEVENS-JOHNSON SYNDROME [None]
